FAERS Safety Report 11097359 (Version 1)
Quarter: 2015Q2

REPORT INFORMATION
  Report Type: Spontaneous
  Country: DE (occurrence: DE)
  Receive Date: 20150507
  Receipt Date: 20150507
  Transmission Date: 20150821
  Serious: Yes (Other)
  Sender: FDA-Public Use
  Company Number: GXKR2015DE002289

PATIENT
  Sex: Male

DRUGS (5)
  1. MARCUMAR [Concomitant]
     Active Substance: PHENPROCOUMON
     Route: 048
  2. AMIODARON 1A PHARMA [Suspect]
     Active Substance: AMIODARONE
     Dosage: 200 MG, QD
     Dates: start: 20150504
  3. PRADAXA [Concomitant]
     Active Substance: DABIGATRAN ETEXILATE MESYLATE
  4. METOHEXAL [Suspect]
     Active Substance: METOPROLOL SUCCINATE
     Dosage: 142.5 MG, (95-0-47.5)
     Route: 048
  5. AMIODARON 1A PHARMA [Suspect]
     Active Substance: AMIODARONE
     Dosage: 200 MG, 5QD
     Route: 048

REACTIONS (2)
  - Pneumonitis [Not Recovered/Not Resolved]
  - Dyspnoea [Not Recovered/Not Resolved]
